FAERS Safety Report 11652240 (Version 1)
Quarter: 2015Q4

REPORT INFORMATION
  Report Type: Spontaneous
  Country: US (occurrence: None)
  Receive Date: 20151021
  Receipt Date: 20151021
  Transmission Date: 20160304
  Serious: Yes (Life-Threatening)
  Sender: FDA-Public Use
  Company Number: None

PATIENT
  Age: 52 Year
  Sex: Female
  Weight: 70.5 kg

DRUGS (2)
  1. IOVERSOL [Concomitant]
     Active Substance: IOVERSOL
  2. ALTEPLASE [Suspect]
     Active Substance: ALTEPLASE

REACTIONS (4)
  - Speech disorder [None]
  - Cerebral haemorrhage [None]
  - VIIth nerve paralysis [None]
  - Hypotonia [None]

NARRATIVE: CASE EVENT DATE: 20151014
